FAERS Safety Report 9818087 (Version 2)
Quarter: 2014Q1

REPORT INFORMATION
  Report Type: Report from Study
  Country: BR (occurrence: BR)
  Receive Date: 20140115
  Receipt Date: 20140213
  Transmission Date: 20141002
  Serious: No
  Sender: FDA-Public Use
  Company Number: PHHY2014BR003519

PATIENT
  Sex: Male

DRUGS (1)
  1. RITALIN LA [Suspect]
     Indication: ATTENTION DEFICIT/HYPERACTIVITY DISORDER
     Dosage: 1 CAPSULE OF 40 MG IN THE MORNING AND 1 CAPSULE OF 10 MG AT NIGHT
     Dates: start: 201312

REACTIONS (2)
  - Aphasia [Unknown]
  - Agitation [Recovered/Resolved]
